FAERS Safety Report 6900104-5 (Version None)
Quarter: 2010Q3

REPORT INFORMATION
  Report Type: 
  Country: None (occurrence: None)
  Receive Date: 20100803
  Receipt Date: 20100726
  Transmission Date: 20110219
  Serious: Yes (Hospitalization)
  Sender: FDA-Public Use
  Company Number: FR-ASTRAZENECA-2010SE35247

PATIENT
  Age: 16832 Day
  Sex: Male

DRUGS (4)
  1. CRESTOR [Suspect]
     Indication: HYPERCHOLESTEROLAEMIA
     Route: 048
     Dates: start: 20080129
  2. ATRIPLA [Suspect]
     Indication: HIV INFECTION
     Route: 048
     Dates: start: 20060101
  3. BIPRETERAX [Suspect]
     Indication: HYPERTENSION
     Route: 048
  4. ASPIRIN [Concomitant]

REACTIONS (1)
  - NEPHROLITHIASIS [None]
